FAERS Safety Report 8971735 (Version 2)
Quarter: 2013Q4

REPORT INFORMATION
  Report Type: Spontaneous
  Country: GB (occurrence: GB)
  Receive Date: 20121217
  Receipt Date: 20131007
  Transmission Date: 20140711
  Serious: Yes (Death, Hospitalization)
  Sender: FDA-Public Use
  Company Number: GB-MYLANLABS-2012S1024653

PATIENT
  Age: 59 Year
  Sex: Male

DRUGS (11)
  1. EPIRUBICIN [Suspect]
     Indication: GASTRIC CANCER
  2. OXALIPLATIN [Suspect]
     Indication: GASTRIC CANCER
  3. CAPECITABINE [Suspect]
     Indication: GASTRIC CANCER
  4. CLOZARIL [Suspect]
     Indication: SCHIZOPHRENIA
     Route: 048
     Dates: start: 20010701, end: 20120718
  5. CLOZARIL [Suspect]
     Indication: SCHIZOPHRENIA
     Route: 048
     Dates: start: 20120721
  6. CLOZARIL [Suspect]
     Indication: SCHIZOPHRENIA
     Route: 048
  7. DALIVIT [Concomitant]
     Indication: VOMITING
     Route: 048
  8. HALOPERIDOL [Concomitant]
     Indication: SCHIZOPHRENIA
     Route: 048
  9. MOVICARD [Concomitant]
     Indication: GASTRIC CANCER
     Route: 048
  10. PROCYCLIDINE [Concomitant]
     Indication: EXTRAPYRAMIDAL DISORDER
     Route: 048
  11. THIAMIN [Concomitant]
     Indication: VOMITING
     Route: 048

REACTIONS (10)
  - Adenocarcinoma gastric [Fatal]
  - Diarrhoea [Recovered/Resolved with Sequelae]
  - Differential white blood cell count abnormal [Unknown]
  - Neutrophil count decreased [Unknown]
  - Platelet count decreased [Unknown]
  - Malaise [Unknown]
  - Vomiting [Recovered/Resolved with Sequelae]
  - Weight decreased [Recovered/Resolved with Sequelae]
  - White blood cell count increased [Unknown]
  - Obstruction gastric [Fatal]
